FAERS Safety Report 7728595-0 (Version None)
Quarter: 2011Q3

REPORT INFORMATION
  Report Type: 
  Country: None (occurrence: None)
  Receive Date: 20110831
  Receipt Date: 20110831
  Transmission Date: 20111222
  Serious: Yes (Death)
  Sender: FDA-Public Use
  Company Number: None

PATIENT
  Age: 69 Year
  Sex: Female

DRUGS (1)
  1. CLOPIDOGREL [Suspect]
     Indication: CEREBROVASCULAR ACCIDENT
     Dosage: 75 MG DAILY ORAL
     Route: 048

REACTIONS (5)
  - SUBDURAL HAEMATOMA [None]
  - EMBOLIC STROKE [None]
  - STATUS EPILEPTICUS [None]
  - FALL [None]
  - MENTAL STATUS CHANGES [None]
